FAERS Safety Report 6113814-7 (Version None)
Quarter: 2009Q1

REPORT INFORMATION
  Report Type: 
  Country: None (occurrence: None)
  Receive Date: 20090312
  Receipt Date: 20090304
  Transmission Date: 20090719
  Serious: Yes (Hospitalization)
  Sender: FDA-Public Use
  Company Number: US-BAXTER-2009BH003739

PATIENT

DRUGS (4)
  1. DURAMORPH PF [Suspect]
     Indication: PAIN MANAGEMENT
     Route: 037
  2. LIORESAL [Suspect]
     Indication: DRUG USE FOR UNKNOWN INDICATION
     Route: 037
  3. LIORESAL [Suspect]
     Route: 037
  4. LIORESAL [Suspect]
     Route: 037

REACTIONS (2)
  - MEDICAL DEVICE COMPLICATION [None]
  - MUSCULOSKELETAL STIFFNESS [None]
